FAERS Safety Report 6823788-9 (Version None)
Quarter: 2010Q3

REPORT INFORMATION
  Report Type: 
  Country: None (occurrence: None)
  Receive Date: 20100708
  Receipt Date: 20060907
  Transmission Date: 20110219
  Serious: Yes (Other)
  Sender: FDA-Public Use
  Company Number: US-PFIZER INC-2006104294

PATIENT
  Sex: Female

DRUGS (3)
  1. CHANTIX [Suspect]
  2. CYMBALTA [Interacting]
     Indication: DEPRESSION
  3. ANTIDEPRESSANTS [Concomitant]

REACTIONS (3)
  - DEPRESSION [None]
  - DRUG INTERACTION [None]
  - SUICIDAL IDEATION [None]
